FAERS Safety Report 6428916-5 (Version None)
Quarter: 2009Q4

REPORT INFORMATION
  Report Type: 
  Country: None (occurrence: None)
  Receive Date: 20091102
  Receipt Date: 20091019
  Transmission Date: 20100525
  Serious: Yes (Hospitalization, Other)
  Sender: FDA-Public Use
  Company Number: 232689K08USA

PATIENT
  Age: 29 Year
  Sex: Female
  Weight: 46 kg

DRUGS (7)
  1. REBIF [Suspect]
     Indication: MULTIPLE SCLEROSIS
     Dosage: 44 MCG, 3 IN 1 WEEKS, SUBCUTANEOUS
     Route: 058
     Dates: start: 20080911, end: 20081001
  2. VICODIN [Concomitant]
  3. ATIVAN [Concomitant]
  4. DIFLUCAN [Concomitant]
  5. OXYCONTIN [Concomitant]
  6. PLAVIX [Concomitant]
  7. ASPIRIN [Concomitant]

REACTIONS (13)
  - ABDOMINAL PAIN [None]
  - ADRENAL DISORDER [None]
  - CARDIAC DISORDER [None]
  - CARDIAC FAILURE CONGESTIVE [None]
  - DIARRHOEA [None]
  - FATIGUE [None]
  - HAEMORRHAGE [None]
  - IMPAIRED GASTRIC EMPTYING [None]
  - LYMPHADENOPATHY [None]
  - MULTIPLE SCLEROSIS RELAPSE [None]
  - NEOPLASM MALIGNANT [None]
  - PELVIC PAIN [None]
  - VOMITING [None]
